FAERS Safety Report 14833507 (Version 2)
Quarter: 2018Q2

REPORT INFORMATION
  Report Type: Spontaneous
  Country: SI (occurrence: SI)
  Receive Date: 20180501
  Receipt Date: 20180525
  Transmission Date: 20180711
  Serious: Yes (Hospitalization)
  Sender: FDA-Public Use
  Company Number: SI-LPDUSPRD-20180663

PATIENT
  Sex: Male

DRUGS (9)
  1. EDEMID [Suspect]
     Active Substance: FUROSEMIDE
     Dosage: 2 DOSAGE FORMS
     Route: 065
  2. PRAVASTATIN. [Suspect]
     Active Substance: PRAVASTATIN
     Dosage: UNKNOWN
     Route: 065
  3. ENTRESTO [Suspect]
     Active Substance: SACUBITRIL\VALSARTAN
     Dosage: UNKNOWN
     Route: 065
  4. LEVOSIMENDAN [Concomitant]
     Active Substance: LEVOSIMENDAN
     Dosage: 1 IN 4 WK)
     Route: 065
  5. FERINJECT [Suspect]
     Active Substance: FERRIC CARBOXYMALTOSE
     Dosage: 1000 MG/UNSPECIFIED DILUTION
     Route: 065
  6. ALLOPURINOL. [Suspect]
     Active Substance: ALLOPURINOL
     Dosage: UNKNOWN
     Route: 065
  7. EPOETIN ALFA [Suspect]
     Active Substance: ERYTHROPOIETIN
     Dosage: 500 IU,1 IN 1 WK
     Route: 065
     Dates: start: 201801
  8. PLIVIT D3 [Concomitant]
     Active Substance: CHOLECALCIFEROL
     Dosage: GTT
  9. ALDACTONE [Concomitant]
     Active Substance: SPIRONOLACTONE
     Dosage: 25 MG
     Route: 065

REACTIONS (9)
  - Peripheral swelling [Recovering/Resolving]
  - Respiratory tract infection viral [Unknown]
  - Cyanosis [Recovering/Resolving]
  - Dyspnoea exertional [Recovering/Resolving]
  - Nephrogenic anaemia [Recovering/Resolving]
  - Cardiac failure [Unknown]
  - Vein disorder [Recovering/Resolving]
  - Oxygen therapy [Unknown]
  - Respiratory failure [Unknown]

NARRATIVE: CASE EVENT DATE: 201707
